FAERS Safety Report 4985162-X (Version None)
Quarter: 2006Q2

REPORT INFORMATION
  Report Type: 
  Country: None (occurrence: None)
  Receive Date: 20060427
  Receipt Date: 20050829
  Transmission Date: 20061013
  Serious: Yes (Hospitalization)
  Sender: FDA-Public Use
  Company Number: US-MERCK-0508USA04675

PATIENT
  Age: 59 Year
  Sex: Female
  Weight: 106 kg

DRUGS (8)
  1. VIOXX [Suspect]
     Indication: OSTEOARTHRITIS
     Route: 048
     Dates: start: 19991001, end: 20020801
  2. VIOXX [Suspect]
     Route: 048
     Dates: start: 19991001, end: 20020801
  3. VIOXX [Suspect]
     Indication: INTERVERTEBRAL DISC DEGENERATION
     Route: 048
     Dates: start: 19991001, end: 20020801
  4. VIOXX [Suspect]
     Route: 048
     Dates: start: 19991001, end: 20020801
  5. PREMARIN [Concomitant]
     Route: 065
  6. PHENOBARBITAL [Concomitant]
     Indication: CONVULSION
     Route: 048
  7. NASONEX [Concomitant]
     Route: 065
  8. PRILOSEC [Concomitant]
     Indication: GASTROOESOPHAGEAL REFLUX DISEASE
     Route: 065

REACTIONS (34)
  - ABDOMINAL PAIN LOWER [None]
  - ABDOMINAL PAIN UPPER [None]
  - ACUTE RESPIRATORY DISTRESS SYNDROME [None]
  - ANGINA PECTORIS [None]
  - BLOOD ALKALINE PHOSPHATASE INCREASED [None]
  - BONE DISORDER [None]
  - BURSITIS [None]
  - CAROTID ARTERY STENOSIS [None]
  - CEREBELLAR SYNDROME [None]
  - CEREBRAL ATROPHY [None]
  - CEREBROVASCULAR ACCIDENT [None]
  - COLITIS [None]
  - CONSTIPATION [None]
  - COUGH [None]
  - DEAFNESS BILATERAL [None]
  - DEEP VEIN THROMBOSIS [None]
  - DERMAL CYST [None]
  - DIZZINESS [None]
  - FALL [None]
  - FUNGAL INFECTION [None]
  - HAEMORRHOIDS [None]
  - HEAD INJURY [None]
  - INTERVERTEBRAL DISC SPACE NARROWING [None]
  - JOINT SPRAIN [None]
  - NECK PAIN [None]
  - NERVOUS SYSTEM DISORDER [None]
  - PAIN IN EXTREMITY [None]
  - RADICULOPATHY [None]
  - ROTATOR CUFF SYNDROME [None]
  - SPINAL OSTEOARTHRITIS [None]
  - TIBIA FRACTURE [None]
  - TINNITUS [None]
  - URINARY TRACT INFECTION [None]
  - VESTIBULAR DISORDER [None]
